FAERS Safety Report 20324014 (Version 2)
Quarter: 2022Q1

REPORT INFORMATION
  Report Type: Report from Study
  Country: US (occurrence: US)
  Receive Date: 20220111
  Receipt Date: 20220119
  Transmission Date: 20220423
  Serious: Yes (Hospitalization)
  Sender: FDA-Public Use
  Company Number: US-PFIZER INC-202101883057

PATIENT
  Age: 76 Year
  Sex: Male
  Weight: 65 kg

DRUGS (3)
  1. TALAZOPARIB [Suspect]
     Active Substance: TALAZOPARIB
     Dosage: 250 UG, ON DAYS 1-3 (TOTAL DOSE ADMINISTERED THIS COURSE: 750 MCG)
     Route: 048
     Dates: start: 20180223, end: 20180225
  2. CARBOPLATIN [Suspect]
     Active Substance: CARBOPLATIN
     Dosage: AUC 6, OVER 30 MIN ON DAY 1 (TOTAL DOSE ADMINISTERED THIS COURSE: 670 MG)
     Route: 042
     Dates: start: 20180223, end: 20180223
  3. TAXOL [Suspect]
     Active Substance: PACLITAXEL
     Dosage: 80 MG/M2, OVER 1 HR ON DAYS 1, 8 AND 15 (TOTAL DOSE ADMINISTERED THIS COURSE: 150 MG)
     Route: 042
     Dates: start: 20180223, end: 20180223

REACTIONS (2)
  - Diarrhoea [Recovering/Resolving]
  - Syncope [Recovering/Resolving]

NARRATIVE: CASE EVENT DATE: 20180228
